FAERS Safety Report 6285131-6 (Version None)
Quarter: 2009Q3

REPORT INFORMATION
  Report Type: 
  Country: None (occurrence: None)
  Receive Date: 20090727
  Receipt Date: 20090717
  Transmission Date: 20100115
  Serious: Yes (Other)
  Sender: FDA-Public Use
  Company Number: PE-PFIZER INC-2009243893

PATIENT

DRUGS (2)
  1. LYRICA [Suspect]
  2. CELEBREX [Suspect]

REACTIONS (1)
  - AMNESIA [None]
